FAERS Safety Report 8612802-6 (Version None)
Quarter: 2012Q3

REPORT INFORMATION
  Report Type: 
  Country: None (occurrence: None)
  Receive Date: 20120822
  Receipt Date: 20110912
  Transmission Date: 20120928
  Serious: No
  Sender: FDA-Public Use
  Company Number: US-ASTRAZENECA-2009UW19788

PATIENT
  Age: 67 Year
  Sex: Male
  Weight: 65.8 kg

DRUGS (5)
  1. MULTI-VITAMIN [Concomitant]
  2. NASONEX [Concomitant]
  3. SYMBICORT [Suspect]
     Indication: ASTHMA
     Dosage: TOTAL DAILY DOSE-320 MCG, TWO TIMES A DAY
     Route: 055
  4. SINGULAIR [Concomitant]
  5. FINASTERIDE [Concomitant]
     Indication: PROSTATOMEGALY

REACTIONS (2)
  - COUGH [None]
  - INCORRECT DOSE ADMINISTERED [None]
